FAERS Safety Report 8790055 (Version 3)
Quarter: 2013Q1

REPORT INFORMATION
  Report Type: Report from Study
  Country: FR (occurrence: FR)
  Receive Date: 20120917
  Receipt Date: 20130307
  Transmission Date: 20140127
  Serious: Yes (Hospitalization)
  Sender: FDA-Public Use
  Company Number: FR-PFIZER INC-2012225710

PATIENT
  Age: 29 Year
  Sex: Male
  Weight: 99.5 kg

DRUGS (7)
  1. GENOTONORM [Suspect]
     Indication: HYPOPITUITARISM
     Dosage: UNK
     Route: 058
     Dates: start: 20040121
  2. GENOTONORM [Suspect]
     Dosage: 0.4 MG, 7 INJECTION/WEEK
     Route: 058
     Dates: start: 20060124
  3. ANDROTARDYL [Concomitant]
     Indication: BLOOD LUTEINISING HORMONE DECREASED
     Dosage: UNK
     Dates: start: 20020408
  4. ANDROTARDYL [Concomitant]
     Indication: BLOOD FOLLICLE STIMULATING HORMONE DECREASED
  5. ANDROTARDYL [Concomitant]
     Indication: HYPOGONADISM MALE
  6. LEVOTHYROX [Concomitant]
     Indication: BLOOD THYROID STIMULATING HORMONE DECREASED
     Dosage: UNK
     Dates: start: 19890615
  7. LEVOTHYROX [Concomitant]
     Indication: PRIMARY HYPOTHYROIDISM

REACTIONS (1)
  - Thyroid cancer [Recovered/Resolved]
